FAERS Safety Report 9782113 (Version 2)
Quarter: 2013Q4

REPORT INFORMATION
  Report Type: Report from Study
  Country: US (occurrence: US)
  Receive Date: 20131226
  Receipt Date: 20131227
  Transmission Date: 20140711
  Serious: Yes (Other)
  Sender: FDA-Public Use
  Company Number: US-ROCHE-1322905

PATIENT
  Sex: Female

DRUGS (14)
  1. AVASTIN [Suspect]
     Indication: CYSTOID MACULAR OEDEMA
     Route: 042
     Dates: start: 20131104
  2. AVASTIN [Suspect]
     Indication: RETINAL VEIN OCCLUSION
     Route: 065
     Dates: start: 20131213
  3. AVASTIN [Suspect]
     Indication: CATARACT SUBCAPSULAR
  4. ACETAMINOPHEN [Concomitant]
     Indication: PAIN
     Route: 048
  5. ASPIRIN [Concomitant]
     Route: 048
  6. BUMETANIDE [Concomitant]
     Dosage: TAKE 2 TABS (2MG) BY MOUTH 2X/DAY
     Route: 048
  7. CARVEDILOL [Concomitant]
     Route: 048
  8. CHOLECALCIFEROL [Concomitant]
     Route: 048
  9. CITALOPRAM [Concomitant]
     Route: 048
  10. FERROUS SULFATE [Concomitant]
     Route: 048
  11. KETOCONAZOLE [Concomitant]
     Route: 061
  12. LISINOPRIL [Concomitant]
     Route: 048
  13. SIMVASTATIN [Concomitant]
     Dosage: TAKE 1 TABS (40MG) BY MOUTH AT BEDTIME
     Route: 048
  14. TRAZODONE [Concomitant]
     Route: 048

REACTIONS (3)
  - Cystoid macular oedema [Unknown]
  - Ocular hyperaemia [Unknown]
  - Visual acuity reduced [Unknown]
